FAERS Safety Report 8551793-3 (Version None)
Quarter: 2012Q3

REPORT INFORMATION
  Report Type: 
  Country: None (occurrence: None)
  Receive Date: 20120730
  Receipt Date: 20120727
  Transmission Date: 20120928
  Serious: Yes (Hospitalization)
  Sender: FDA-Public Use
  Company Number: US-AMGEN-USACT2012045879

PATIENT
  Age: 41 Year
  Sex: Female
  Weight: 168.53 kg

DRUGS (6)
  1. PANITUMUMAB [Suspect]
     Indication: BREAST CANCER
     Dosage: UNK
     Route: 042
     Dates: start: 20120720
  2. IBUPROFEN [Concomitant]
     Indication: PAIN
     Dosage: 400 MG, BID
  3. IMODIUM [Concomitant]
     Indication: DIARRHOEA
     Dosage: UNK
     Dates: start: 20120720, end: 20120721
  4. CARBOPLATIN [Concomitant]
     Dosage: UNK
     Route: 042
     Dates: start: 20120720
  5. GEMCITABINE [Concomitant]
     Dosage: UNK
     Route: 042
     Dates: start: 20120720
  6. MULTI-VITAMIN [Concomitant]
     Dosage: UNK UNK, QD

REACTIONS (8)
  - DIARRHOEA [None]
  - NAUSEA [None]
  - FEELING COLD [None]
  - PYREXIA [None]
  - VIRAL DIARRHOEA [None]
  - INCONTINENCE [None]
  - ABDOMINAL PAIN UPPER [None]
  - HEADACHE [None]
